FAERS Safety Report 15695938 (Version 1)
Quarter: 2018Q4

REPORT INFORMATION
  Report Type: Report from Study
  Country: US (occurrence: US)
  Receive Date: 20181206
  Receipt Date: 20181206
  Transmission Date: 20190205
  Serious: No
  Sender: FDA-Public Use
  Company Number: US-SHIRE-US201847178

PATIENT
  Sex: Female

DRUGS (1)
  1. GATTEX [Suspect]
     Active Substance: TEDUGLUTIDE\WATER
     Indication: SHORT-BOWEL SYNDROME
     Dosage: 1.9 MG, 1X/DAY:QD (DAILY)
     Route: 058
     Dates: start: 20181101, end: 20181112

REACTIONS (2)
  - Gastric polyps [Unknown]
  - Dysplasia [Unknown]
